FAERS Safety Report 20776007 (Version 1)
Quarter: 2022Q2

REPORT INFORMATION
  Report Type: Spontaneous
  Country: SE (occurrence: SE)
  Receive Date: 20220502
  Receipt Date: 20220502
  Transmission Date: 20220721
  Serious: Yes (Disabling)
  Sender: FDA-Public Use
  Company Number: None

PATIENT
  Age: 55 Year
  Sex: Female
  Weight: 80 kg

DRUGS (6)
  1. OMEPRAZOLE [Suspect]
     Active Substance: OMEPRAZOLE
     Indication: Gastrooesophageal reflux disease
     Dosage: OMEPRAZOLE TEVA 20 MG ENTEROCAPSULE, HARD
     Route: 048
     Dates: start: 2019, end: 20220409
  2. OMEPRAZOLE [Suspect]
     Active Substance: OMEPRAZOLE
     Indication: Dyspepsia
  3. ESOMEPRAZOLE SODIUM [Suspect]
     Active Substance: ESOMEPRAZOLE SODIUM
     Indication: Gastrooesophageal reflux disease
     Dosage: ESOMEPRAZOLE SUN 20 MG ENTEROCAPSULE, HARD
     Route: 048
     Dates: start: 202204, end: 202204
  4. ESOMEPRAZOLE SODIUM [Suspect]
     Active Substance: ESOMEPRAZOLE SODIUM
     Indication: Dyspepsia
  5. DESLORATADINE TEVA [Concomitant]
     Dosage: DESLORATADINE TEVA 5 MG FILM-COATED TABLET
     Route: 048
  6. SUMATRIPTAN [Concomitant]
     Active Substance: SUMATRIPTAN
     Dosage: SUMATRIPTAN SANDOZ 50 MG FILM-COATED TABLET
     Route: 048

REACTIONS (3)
  - Sudden hearing loss [Recovered/Resolved with Sequelae]
  - Tinnitus [Not Recovered/Not Resolved]
  - Dizziness [Recovering/Resolving]

NARRATIVE: CASE EVENT DATE: 20211030
